FAERS Safety Report 8016123-4 (Version None)
Quarter: 2011Q4

REPORT INFORMATION
  Report Type: 
  Country: None (occurrence: None)
  Receive Date: 20111230
  Receipt Date: 20111223
  Transmission Date: 20120403
  Serious: No
  Sender: FDA-Public Use
  Company Number: US-B.I. PHARMACEUTICALS,INC./RIDGEFIELD-2011-BP-27096BP

PATIENT
  Sex: Male

DRUGS (3)
  1. PROAIR HFA [Concomitant]
     Indication: DYSPNOEA
     Dosage: 2 PUF
     Route: 055
  2. SPIRIVA [Suspect]
     Indication: BRONCHITIS CHRONIC
     Dosage: 18 MCG
     Route: 055
     Dates: start: 20111117
  3. ADVAIR DISKUS 100/50 [Concomitant]
     Indication: BRONCHITIS
     Dosage: 2 PUF
     Route: 055
     Dates: start: 20110501

REACTIONS (2)
  - MYCOTIC ALLERGY [None]
  - DYSPNOEA [None]
